FAERS Safety Report 8735312 (Version 2)
Quarter: 2013Q4

REPORT INFORMATION
  Report Type: Spontaneous
  Country: JP (occurrence: JP)
  Receive Date: 20120822
  Receipt Date: 20131105
  Transmission Date: 20140711
  Serious: Yes (Hospitalization)
  Sender: FDA-Public Use
  Company Number: JP-009507513-1207JPN007948

PATIENT
  Age: 57 Year
  Sex: Male

DRUGS (14)
  1. JANUVIA TABLETS 25MG [Suspect]
     Dosage: DAILY DOSE UNKNOWN
     Route: 048
     Dates: start: 201005
  2. SITAGLIPTIN PHOSPHATE [Suspect]
     Indication: TYPE 2 DIABETES MELLITUS
     Dosage: DAILY DOSE UNKNOWN
     Route: 048
     Dates: start: 201005
  3. PIOGLITAZONE HYDROCHLORIDE [Concomitant]
     Indication: TYPE 2 DIABETES MELLITUS
     Dosage: DAILY DOSAGE UNKNOWN
     Route: 048
  4. PIOGLITAZONE HYDROCHLORIDE [Concomitant]
     Dosage: DAILY DOSAGE UNKNOWN
     Route: 048
  5. GLIMEPIRIDE [Concomitant]
     Indication: ANGINA PECTORIS
     Dosage: DAILY DOSAGE UNKNOWN
     Route: 048
  6. GLIMEPIRIDE [Concomitant]
     Indication: TYPE 2 DIABETES MELLITUS
     Dosage: DAILY DOSAGE UNKNOWN
     Route: 048
  7. GLIMEPIRIDE [Concomitant]
     Indication: HYPERTENSION
     Dosage: DAILY DOSAGE UNKNOWN
     Route: 048
  8. GLIMEPIRIDE [Concomitant]
     Dosage: DAILY DOSAGE UNKNOWN
     Route: 048
  9. GLIMEPIRIDE [Concomitant]
     Dosage: DAILY DOSAGE UNKNOWN
     Route: 048
  10. GLIMEPIRIDE [Concomitant]
     Dosage: DAILY DOSAGE UNKNOWN
     Route: 048
  11. GLIMEPIRIDE [Concomitant]
     Dosage: DAILY DOSAGE UNKNOWN
     Route: 065
  12. GLIMEPIRIDE [Concomitant]
     Dosage: DAILY DOSAGE UNKNOWN
     Route: 065
  13. DILTIAZEM HYDROCHLORIDE [Concomitant]
     Indication: HYPERTENSION
     Dosage: DAILY DOSAGE UNKNOWN
     Route: 065
  14. DILTIAZEM HYDROCHLORIDE [Concomitant]
     Indication: ANGINA PECTORIS
     Dosage: DAILY DOSAGE UNKNOWN
     Route: 065

REACTIONS (1)
  - Acute generalised exanthematous pustulosis [Recovered/Resolved]
